FAERS Safety Report 5140525-7 (Version None)
Quarter: 2006Q4

REPORT INFORMATION
  Report Type: 
  Country: None (occurrence: None)
  Receive Date: 20061025
  Receipt Date: 20061006
  Transmission Date: 20070319
  Serious: No
  Sender: FDA-Public Use
  Company Number: SP00995

PATIENT
  Sex: Male

DRUGS (1)
  1. OSMOPREP (UNKNOWN) [Suspect]
     Indication: COLONOSCOPY

REACTIONS (5)
  - APNOEA [None]
  - ASPIRATION [None]
  - CHOKING [None]
  - PULMONARY OEDEMA [None]
  - PYREXIA [None]
